FAERS Safety Report 10476913 (Version 1)
Quarter: 2014Q3

REPORT INFORMATION
  Report Type: Spontaneous
  Country: CA (occurrence: CA)
  Receive Date: 20140926
  Receipt Date: 20140926
  Transmission Date: 20150326
  Serious: Yes (Hospitalization, Other)
  Sender: FDA-Public Use
  Company Number: CA-AMGEN-CANSP2014072088

PATIENT

DRUGS (1)
  1. NPLATE [Suspect]
     Active Substance: ROMIPLOSTIM
     Indication: PRODUCT USED FOR UNKNOWN INDICATION
     Dosage: UNK
     Route: 065

REACTIONS (5)
  - Dialysis [Unknown]
  - Platelet count abnormal [Unknown]
  - Pain [Recovering/Resolving]
  - Asthenia [Recovering/Resolving]
  - Medication error [Unknown]
